FAERS Safety Report 12930607 (Version 1)
Quarter: 2016Q4

REPORT INFORMATION
  Report Type: Spontaneous
  Country: US (occurrence: US)
  Receive Date: 20161110
  Receipt Date: 20161110
  Transmission Date: 20170207
  Serious: Yes (Hospitalization)
  Sender: FDA-Public Use
  Company Number: US-LUNDBECK-DKLU2022237

PATIENT
  Sex: Female

DRUGS (3)
  1. ONFI [Suspect]
     Active Substance: CLOBAZAM
     Indication: EPILEPSY
     Route: 065
     Dates: start: 201212
  2. ONFI [Suspect]
     Active Substance: CLOBAZAM
     Indication: IDIOPATHIC GENERALISED EPILEPSY
     Route: 065
     Dates: start: 201212
  3. ONFI [Suspect]
     Active Substance: CLOBAZAM
     Indication: STATUS EPILEPTICUS

REACTIONS (1)
  - Brain operation [Unknown]
